FAERS Safety Report 4444088-0 (Version None)
Quarter: 2004Q3

REPORT INFORMATION
  Report Type: 
  Country: None (occurrence: None)
  Receive Date: 20040729
  Receipt Date: 20030715
  Transmission Date: 20050211
  Serious: Yes (Death, Other)
  Sender: FDA-Public Use
  Company Number: USA-2003-0008874

PATIENT
  Age: 40 Year
  Sex: Male
  Weight: 77.1 kg

DRUGS (5)
  1. MORPHINE SULFATE [Suspect]
  2. ETHANOL (ETHANOL) [Suspect]
     Dosage: ORAL
     Route: 048
  3. PROPOXYPHENE HCL [Suspect]
  4. ACETAMINOPHEN [Suspect]
  5. IBUPROFEN [Suspect]

REACTIONS (1)
  - ACCIDENTAL OVERDOSE [None]
